FAERS Safety Report 17144901 (Version 1)
Quarter: 2019Q4

REPORT INFORMATION
  Report Type: Spontaneous
  Country: NL (occurrence: NL)
  Receive Date: 20191212
  Receipt Date: 20191212
  Transmission Date: 20200122
  Serious: Yes (Death)
  Sender: FDA-Public Use
  Company Number: NL-FRESENIUS KABI-FK201913602

PATIENT
  Age: 60 Year
  Sex: Female
  Weight: 90 kg

DRUGS (1)
  1. ROPIVACAINE (MANUFACTURER UNKNOWN) [Suspect]
     Active Substance: ROPIVACAINE
     Indication: ANAESTHESIA PROCEDURE
     Route: 065
     Dates: start: 20191017

REACTIONS (2)
  - Cardiac arrest [Fatal]
  - Arrhythmia [Fatal]

NARRATIVE: CASE EVENT DATE: 20191017
